FAERS Safety Report 21234184 (Version 1)
Quarter: 2022Q3

REPORT INFORMATION
  Report Type: Spontaneous
  Country: DE (occurrence: DE)
  Receive Date: 20220819
  Receipt Date: 20220819
  Transmission Date: 20221027
  Serious: Yes (Other)
  Sender: FDA-Public Use
  Company Number: DE-ROCHE-3154956

PATIENT
  Age: 69 Year
  Sex: Female
  Weight: 61.5 kg

DRUGS (12)
  1. BENDAMUSTINE HYDROCHLORIDE [Suspect]
     Active Substance: BENDAMUSTINE HYDROCHLORIDE
     Indication: Diffuse large B-cell lymphoma
     Dosage: (IN COMBINATION WITH RITUXIMAB AND POLATUZUMAB)
     Route: 042
     Dates: start: 20220203, end: 20220601
  2. GEMCITABINE [Suspect]
     Active Substance: GEMCITABINE
     Indication: Diffuse large B-cell lymphoma
     Dosage: (R-GEMOX)
     Route: 042
     Dates: start: 20210601, end: 20210701
  3. OXALIPLATIN [Suspect]
     Active Substance: OXALIPLATIN
     Indication: Diffuse large B-cell lymphoma
     Dosage: (R-GEMOX)
     Route: 042
     Dates: start: 20210601, end: 20210701
  4. DEXAMETHASONE [Suspect]
     Active Substance: DEXAMETHASONE
     Indication: Diffuse large B-cell lymphoma
     Dosage: (DEXA-BEAM, ONE CYCLE)
     Route: 065
     Dates: start: 20220627, end: 20220703
  5. MABTHERA [Suspect]
     Active Substance: RITUXIMAB
     Indication: Diffuse large B-cell lymphoma
     Dosage: R-CHOP, THREE CYCLES)
     Route: 042
     Dates: start: 20210401, end: 20210501
  6. MABTHERA [Suspect]
     Active Substance: RITUXIMAB
     Dosage: UNK UNK, CYCLIC (R-GEMOX, THREE CYCLES)
     Route: 042
     Dates: start: 20210601, end: 20210701
  7. MABTHERA [Suspect]
     Active Substance: RITUXIMAB
     Dosage: UNK UNK, CYCLIC (IN COMBINATION WITH POLATUZUMAB AND BENDAMUSTIN, FIVE CYCLES)
     Route: 042
     Dates: start: 20220203, end: 20220601
  8. POLIVY [Suspect]
     Active Substance: POLATUZUMAB VEDOTIN-PIIQ
     Indication: Diffuse large B-cell lymphoma
     Dosage: (IN COMBINATION WITH RITUXIMAB AND BENDAMUSTIN, FIVE CYCLES)
     Route: 042
     Dates: start: 20220203, end: 20220601
  9. CYCLOPHOSPHAMIDE\DOXORUBICIN\PREDNISONE\VINCRISTINE [Suspect]
     Active Substance: CYCLOPHOSPHAMIDE\DOXORUBICIN\PREDNISONE\VINCRISTINE
     Indication: Diffuse large B-cell lymphoma
     Dosage: (R-CHOP)
     Route: 042
     Dates: start: 20210401, end: 20210501
  10. BEAM [Suspect]
     Active Substance: SODIUM FLUORIDE
     Indication: Diffuse large B-cell lymphoma
     Dosage: (DEXA-BEAM)
     Route: 065
     Dates: start: 20220627, end: 20220703
  11. REVLIMID [Concomitant]
     Active Substance: LENALIDOMIDE
     Indication: Diffuse large B-cell lymphoma
     Route: 065
     Dates: start: 20211206, end: 20220107
  12. TAFASITAMAB-CXIX [Concomitant]
     Active Substance: TAFASITAMAB-CXIX
     Indication: Diffuse large B-cell lymphoma
     Route: 065
     Dates: start: 20211206, end: 20220107

REACTIONS (6)
  - Malignant neoplasm progression [Unknown]
  - Systemic candida [Recovered/Resolved]
  - Bacteraemia [Recovered/Resolved]
  - Haematotoxicity [Unknown]
  - Pyrexia [Unknown]
  - Off label use [Unknown]

NARRATIVE: CASE EVENT DATE: 20220203
